FAERS Safety Report 24916082 (Version 1)
Quarter: 2025Q1

REPORT INFORMATION
  Report Type: Report from Study
  Country: BR (occurrence: BR)
  Receive Date: 20250203
  Receipt Date: 20250203
  Transmission Date: 20250408
  Serious: Yes (Hospitalization)
  Sender: BIOGEN
  Company Number: BR-BIOGEN-2025BI01298831

PATIENT
  Sex: Female
  Weight: 90 kg

DRUGS (1)
  1. TYSABRI [Suspect]
     Active Substance: NATALIZUMAB
     Indication: Multiple sclerosis
     Route: 050
     Dates: start: 20240418

REACTIONS (4)
  - Cellulitis [Recovered/Resolved]
  - Thrombophlebitis [Unknown]
  - Toothache [Recovered/Resolved]
  - Oral pustule [Recovered/Resolved]
